FAERS Safety Report 7366828-3 (Version None)
Quarter: 2011Q1

REPORT INFORMATION
  Report Type: 
  Country: None (occurrence: None)
  Receive Date: 20110322
  Receipt Date: 20110317
  Transmission Date: 20110831
  Serious: Yes (Death)
  Sender: FDA-Public Use
  Company Number: CZ-ROCHE-766223

PATIENT
  Sex: Female

DRUGS (7)
  1. BEVACIZUMAB [Suspect]
     Route: 042
     Dates: start: 20090506, end: 20090730
  2. XELODA [Concomitant]
     Dates: start: 20110224, end: 20110315
  3. IRINOTECAN HYDROCHLORIDE [Concomitant]
     Dates: start: 20110224, end: 20110315
  4. BEVACIZUMAB [Suspect]
     Dosage: TREATMENT INTERRUPTED
     Route: 042
     Dates: start: 20081216, end: 20090105
  5. BEVACIZUMAB [Suspect]
     Route: 042
     Dates: start: 20110224, end: 20110315
  6. BEVACIZUMAB [Suspect]
     Route: 042
     Dates: start: 20090819, end: 20100901
  7. BEVACIZUMAB [Suspect]
     Route: 042
     Dates: start: 20080604

REACTIONS (2)
  - SEPSIS [None]
  - ILEUS [None]
